FAERS Safety Report 16740474 (Version 2)
Quarter: 2019Q4

REPORT INFORMATION
  Report Type: Spontaneous
  Country: US (occurrence: US)
  Receive Date: 20190826
  Receipt Date: 20191122
  Transmission Date: 20200122
  Serious: No
  Sender: FDA-Public Use
  Company Number: US-PFIZER INC-2019010628

PATIENT
  Age: 14 Year
  Sex: Male
  Weight: 49 kg

DRUGS (11)
  1. GENOTROPIN [Suspect]
     Active Substance: SOMATROPIN
     Dosage: 1.1 MG, 1X/DAY
     Dates: start: 201910
  2. GENOTROPIN [Suspect]
     Active Substance: SOMATROPIN
     Indication: GROWTH HORMONE DEFICIENCY
     Dosage: 1.4 MG, 1X/DAY (ONCE DAILY AT BEDTIME)
     Route: 058
     Dates: start: 201811
  3. FLUVOXAMINE MALEATE. [Concomitant]
     Active Substance: FLUVOXAMINE MALEATE
     Dosage: UNK
  4. FLUVOXAMINE [Concomitant]
     Active Substance: FLUVOXAMINE
     Dosage: UNK
  5. OXCARBAZEPINE. [Concomitant]
     Active Substance: OXCARBAZEPINE
     Dosage: UNK
  6. CLONIDINE. [Concomitant]
     Active Substance: CLONIDINE
     Dosage: UNK
  7. ALLEGRA ALLERGY [Concomitant]
     Active Substance: FEXOFENADINE HYDROCHLORIDE
     Dosage: UNK
  8. MELATONIN [Concomitant]
     Active Substance: MELATONIN
     Dosage: UNK
  9. GENOTROPIN [Suspect]
     Active Substance: SOMATROPIN
     Indication: BLOOD GROWTH HORMONE NORMAL
     Dosage: 1.4 MG OR 1.4 WHATEVER IT IS
     Dates: start: 20181108
  10. VYVANSE [Concomitant]
     Active Substance: LISDEXAMFETAMINE DIMESYLATE
     Indication: ATTENTION DEFICIT/HYPERACTIVITY DISORDER
     Dosage: UNK
  11. VITAMIN D3 [Concomitant]
     Active Substance: CHOLECALCIFEROL
     Dosage: UNK

REACTIONS (1)
  - Headache [Not Recovered/Not Resolved]
